FAERS Safety Report 13014198 (Version 6)
Quarter: 2017Q1

REPORT INFORMATION
  Report Type: Report from Study
  Country: AU (occurrence: AU)
  Receive Date: 20161209
  Receipt Date: 20170317
  Transmission Date: 20170428
  Serious: Yes (Life-Threatening, Hospitalization)
  Sender: FDA-Public Use
  Company Number: AU-ALEXION PHARMACEUTICALS INC.-A201609415

PATIENT
  Age: 28 Year
  Sex: Female

DRUGS (55)
  1. SPAN-K [Concomitant]
     Active Substance: POTASSIUM CHLORIDE
     Indication: RENAL TUBULAR ACIDOSIS
     Dosage: VARIABLE, MMOLE, CONTINUOUS
     Route: 042
     Dates: start: 20161128, end: 20161212
  2. SPAN-K [Concomitant]
     Active Substance: POTASSIUM CHLORIDE
     Dosage: 600 MG, BID
     Route: 048
     Dates: start: 20161215, end: 20161219
  3. SODIBIC [Concomitant]
     Dosage: 100 MMOL, TID
     Route: 042
     Dates: start: 20161129, end: 20161129
  4. PANTOPRAZOLE [Concomitant]
     Active Substance: PANTOPRAZOLE SODIUM
     Indication: GASTRITIS
     Dosage: 40 MG TAB, BID
     Route: 048
     Dates: start: 20161028, end: 20161127
  5. MIDAZOLAM [Concomitant]
     Active Substance: MIDAZOLAM HYDROCHLORIDE
     Indication: PREMEDICATION
     Dosage: 3 MG, PRN
     Route: 042
     Dates: start: 20161118, end: 20161118
  6. VECURONIUM [Concomitant]
     Active Substance: VECURONIUM BROMIDE
     Dosage: 20 MG, BID
     Route: 042
     Dates: start: 20161204, end: 20161205
  7. MICROGYNON                         /00022701/ [Concomitant]
     Active Substance: ETHINYL ESTRADIOL\LEVONORGESTREL ACETATE
     Indication: CONTRACEPTION
     Dosage: 30 ED, QD
     Route: 048
     Dates: start: 2014, end: 20161127
  8. ECULIZUMAB [Suspect]
     Active Substance: ECULIZUMAB
     Indication: HAEMOLYTIC URAEMIC SYNDROME
     Dosage: 1200 MG, Q2W
     Route: 042
     Dates: start: 20160201, end: 20160201
  9. PARACETAMOL [Concomitant]
     Active Substance: ACETAMINOPHEN
     Indication: PAIN
     Dosage: 1 G TAB, TID
     Route: 048
     Dates: start: 20161027
  10. PANTOPRAZOLE [Concomitant]
     Active Substance: PANTOPRAZOLE SODIUM
     Indication: GASTRIC ULCER
     Dosage: VARIABLE, MG, CONTINUOUS
     Route: 042
     Dates: start: 20161129, end: 20161212
  11. MIDAZOLAM [Concomitant]
     Active Substance: MIDAZOLAM HYDROCHLORIDE
     Indication: SEDATION
     Dosage: VARIABLE, MG, CONTINUOUS
     Route: 042
     Dates: start: 20161128, end: 20161129
  12. ATROPINE. [Concomitant]
     Active Substance: ATROPINE
     Indication: BRADYCARDIA
     Dosage: 0.3 MG, SINGLE
     Route: 042
     Dates: start: 20161128, end: 20161128
  13. POLOXAMER [Concomitant]
     Active Substance: POLOXAMER
     Indication: PRODUCT USED FOR UNKNOWN INDICATION
     Route: 065
  14. PARACETAMOL [Concomitant]
     Active Substance: ACETAMINOPHEN
     Dosage: 1 G, TID
     Route: 048
     Dates: start: 20161220
  15. PANTOPRAZOLE [Concomitant]
     Active Substance: PANTOPRAZOLE SODIUM
     Dosage: 40 MG, BID
     Route: 048
     Dates: start: 20161214
  16. FENTANYL. [Concomitant]
     Active Substance: FENTANYL
     Indication: PREMEDICATION
     Dosage: 50 ?G, PRN
     Route: 042
     Dates: start: 20161118, end: 20161118
  17. FENTANYL. [Concomitant]
     Active Substance: FENTANYL
     Indication: ANALGESIC THERAPY
     Dosage: VARIABLE, MICROGRAM, CONTINUOUS
     Route: 042
     Dates: start: 20161128, end: 20161210
  18. ACYCLOVIR                          /00587301/ [Concomitant]
     Active Substance: ACYCLOVIR
     Dosage: 500 MG, TID
     Route: 042
     Dates: start: 20161129, end: 20161129
  19. ACYCLOVIR                          /00587301/ [Concomitant]
     Active Substance: ACYCLOVIR
     Dosage: 500 MG, BID
     Route: 048
     Dates: start: 20161202, end: 20161202
  20. SUXAMETHONIUM [Concomitant]
     Active Substance: SUCCINYLCHOLINE
     Dosage: 60 MG, SINGLE
     Route: 042
     Dates: start: 20161211, end: 20161211
  21. ECULIZUMAB [Suspect]
     Active Substance: ECULIZUMAB
     Dosage: 1200 MG, Q2W
     Route: 042
     Dates: start: 20161121, end: 20161121
  22. VENTOLIN [Concomitant]
     Active Substance: ALBUTEROL SULFATE
     Dosage: 5 MG, PRN
     Route: 055
     Dates: start: 20161202, end: 20161209
  23. THIAMINE. [Concomitant]
     Active Substance: THIAMINE
     Indication: VITAMIN SUPPLEMENTATION
     Dosage: 100 MG, QD
     Route: 048
     Dates: start: 20161026, end: 20161127
  24. THIAMINE. [Concomitant]
     Active Substance: THIAMINE
     Dosage: 300 MG, QD
     Route: 042
     Dates: start: 20161129, end: 20161211
  25. FENTANYL. [Concomitant]
     Active Substance: FENTANYL
     Dosage: 25 ?G, SINGLE
     Route: 058
     Dates: start: 20161220, end: 20161220
  26. FERROUS SULFATE. [Concomitant]
     Active Substance: FERROUS SULFATE
     Indication: MINERAL SUPPLEMENTATION
     Dosage: 325 MG, QD
     Route: 048
     Dates: start: 20161111
  27. VECURONIUM [Concomitant]
     Active Substance: VECURONIUM BROMIDE
     Indication: MUSCLE RELAXANT THERAPY
     Dosage: 5 MG, SINGLE
     Route: 042
     Dates: start: 20161128, end: 20161128
  28. SUXAMETHONIUM [Concomitant]
     Active Substance: SUCCINYLCHOLINE
     Indication: ENDOTRACHEAL INTUBATION
     Dosage: 50 MG, SINGLE
     Route: 042
     Dates: start: 20161128, end: 20161128
  29. HYDROCORTISONE. [Concomitant]
     Active Substance: HYDROCORTISONE
     Indication: ANTIINFLAMMATORY THERAPY
     Dosage: 200 MG, SINGLE
     Route: 042
     Dates: start: 20161128, end: 20161128
  30. VENTOLIN [Concomitant]
     Active Substance: ALBUTEROL SULFATE
     Indication: UPPER RESPIRATORY TRACT INFECTION
     Dosage: 2 PUFF, PRN
     Route: 055
     Dates: start: 20161010, end: 201611
  31. SPAN-K [Concomitant]
     Active Substance: POTASSIUM CHLORIDE
     Dosage: 1200 MG, TID
     Route: 048
     Dates: start: 20161219
  32. RANITIDINE. [Concomitant]
     Active Substance: RANITIDINE
     Dosage: 50 MG, TID
     Route: 042
     Dates: start: 20161128, end: 20161129
  33. CEFTRIAXONE. [Concomitant]
     Active Substance: CEFTRIAXONE
     Dosage: 1 G, BID
     Route: 042
     Dates: start: 20161208, end: 20161208
  34. KETAMINE [Concomitant]
     Active Substance: KETAMINE
     Dosage: 30 MG, SINGLE
     Route: 042
     Dates: start: 20161128, end: 20161128
  35. ECULIZUMAB [Suspect]
     Active Substance: ECULIZUMAB
     Dosage: 1200 MG, Q2W
     Route: 042
     Dates: start: 20170116, end: 20170116
  36. SPAN-K [Concomitant]
     Active Substance: POTASSIUM CHLORIDE
     Indication: HYPOKALAEMIA
     Dosage: 2400 MG, TID
     Route: 048
     Dates: start: 20161026, end: 20161127
  37. RANITIDINE. [Concomitant]
     Active Substance: RANITIDINE
     Indication: GASTRITIS
     Dosage: 300 MG TAB, QD
     Route: 048
     Dates: start: 20161026, end: 20161127
  38. MIDAZOLAM [Concomitant]
     Active Substance: MIDAZOLAM HYDROCHLORIDE
     Dosage: UNK
     Route: 042
     Dates: start: 20161207
  39. CEFTRIAXONE. [Concomitant]
     Active Substance: CEFTRIAXONE
     Indication: ANTIBIOTIC PROPHYLAXIS
     Dosage: 1 G, BID
     Route: 042
     Dates: start: 20161128, end: 20161128
  40. ISOPRENALINE [Concomitant]
     Active Substance: ISOPROTERENOL HYDROCHLORIDE
     Indication: BRADYCARDIA
     Dosage: VARIABLE, ?G
     Route: 042
     Dates: start: 20161128, end: 20161128
  41. ADRENALINE                         /00003901/ [Concomitant]
     Active Substance: EPINEPHRINE
     Indication: BRADYCARDIA
     Dosage: VARIABLE MICROGRAM, CONTINOUS
     Route: 042
     Dates: start: 20161128, end: 20161202
  42. CYCLOSPORINE. [Concomitant]
     Active Substance: CYCLOSPORINE
     Indication: PROPHYLAXIS
     Dosage: 150 MG, BID
     Route: 048
     Dates: start: 20161025, end: 20161104
  43. SODIBIC [Concomitant]
     Indication: RENAL TUBULAR ACIDOSIS
     Dosage: 3360 MG, QID
     Route: 048
     Dates: start: 20161027, end: 20161127
  44. SODIBIC [Concomitant]
     Dosage: 100 MMOL, BID
     Route: 042
     Dates: start: 20161130, end: 20161130
  45. PANTOPRAZOLE [Concomitant]
     Active Substance: PANTOPRAZOLE SODIUM
     Dosage: UNK
     Route: 042
     Dates: start: 20161211
  46. ACYCLOVIR                          /00587301/ [Concomitant]
     Active Substance: ACYCLOVIR
     Indication: VARICELLA ZOSTER VIRUS INFECTION
     Dosage: 500 MG, QD
     Route: 042
     Dates: start: 20161128, end: 20161128
  47. ACYCLOVIR                          /00587301/ [Concomitant]
     Active Substance: ACYCLOVIR
     Dosage: 500 MG, QD
     Route: 042
     Dates: start: 20161130, end: 20161130
  48. VECURONIUM [Concomitant]
     Active Substance: VECURONIUM BROMIDE
     Dosage: 20 MG, QD
     Route: 042
     Dates: start: 20161202, end: 20161203
  49. VITAMIN K [Concomitant]
     Active Substance: PHYTONADIONE
     Indication: HAEMORRHAGE PROPHYLAXIS
     Dosage: 5 MG, QD
     Route: 058
     Dates: start: 20161128, end: 20161202
  50. HYDROCORTISONE. [Concomitant]
     Active Substance: HYDROCORTISONE
     Dosage: 100 MG, BID
     Route: 042
     Dates: start: 20161130, end: 20161201
  51. ECULIZUMAB [Suspect]
     Active Substance: ECULIZUMAB
     Dosage: 1200 MG, Q2W
     Route: 042
     Dates: start: 20161220, end: 20161220
  52. PANTOPRAZOLE [Concomitant]
     Active Substance: PANTOPRAZOLE SODIUM
     Indication: GASTROOESOPHAGEAL REFLUX DISEASE
     Dosage: UNK
     Route: 042
     Dates: start: 20161202
  53. CEFTRIAXONE. [Concomitant]
     Active Substance: CEFTRIAXONE
     Indication: ACUTE LUNG INJURY
     Dosage: 2 G, BID
     Route: 042
     Dates: start: 20161129, end: 20161129
  54. KETAMINE [Concomitant]
     Active Substance: KETAMINE
     Indication: MAINTENANCE OF ANAESTHESIA
     Dosage: 80 MG, SINGLE
     Route: 042
     Dates: start: 20161128, end: 20161128
  55. ACTRAPID [Concomitant]
     Active Substance: INSULIN HUMAN
     Indication: BLOOD GLUCOSE ABNORMAL
     Dosage: VARIABLE IU, CONTINUOUS INFUSION BASED ON BGLS
     Route: 042
     Dates: start: 20161128

REACTIONS (5)
  - Fluid overload [Recovered/Resolved]
  - Altered state of consciousness [Recovered/Resolved]
  - Hepatic encephalopathy [Recovered/Resolved]
  - Acute lung injury [Recovered/Resolved]
  - Liver injury [Recovered/Resolved]

NARRATIVE: CASE EVENT DATE: 20161128
